FAERS Safety Report 6942127-6 (Version None)
Quarter: 2010Q3

REPORT INFORMATION
  Report Type: 
  Country: None (occurrence: None)
  Receive Date: 20100820
  Receipt Date: 20100813
  Transmission Date: 20110219
  Serious: Yes (Other)
  Sender: FDA-Public Use
  Company Number: CRC-10-137

PATIENT
  Sex: Male
  Weight: 56.6996 kg

DRUGS (6)
  1. CARBIDOPA AND LEVODOPA [Suspect]
     Indication: PARKINSON'S DISEASE
     Dosage: 1.5 TABLET QID ORALLY
     Route: 048
     Dates: start: 20100722
  2. NAMENDA [Concomitant]
  3. FINSTERIDE [Concomitant]
  4. COLCHICINE [Concomitant]
  5. TAMSULOSIN HCL [Concomitant]
  6. OMEPRAZOLE [Concomitant]

REACTIONS (8)
  - ASTHENIA [None]
  - CONDITION AGGRAVATED [None]
  - DRUG INEFFECTIVE [None]
  - GAIT DISTURBANCE [None]
  - MUSCLE CONTRACTURE [None]
  - MUSCLE SPASMS [None]
  - MUSCULOSKELETAL STIFFNESS [None]
  - PRODUCT SUBSTITUTION ISSUE [None]
